FAERS Safety Report 16466181 (Version 1)
Quarter: 2019Q2

REPORT INFORMATION
  Report Type: Spontaneous
  Country: US (occurrence: US)
  Receive Date: 20190621
  Receipt Date: 20190621
  Transmission Date: 20190711
  Serious: No
  Sender: FDA-Public Use
  Company Number: US-ACORDA-ACO_159346_2019

PATIENT
  Sex: Male
  Weight: 83.9 kg

DRUGS (1)
  1. INBRIJA [Suspect]
     Active Substance: LEVODOPA
     Indication: PARKINSON^S DISEASE
     Dosage: UNK, PRN
     Dates: start: 20190613

REACTIONS (5)
  - Wrong technique in device usage process [Unknown]
  - Cough [Unknown]
  - Drug ineffective [Unknown]
  - Nausea [Recovering/Resolving]
  - Foreign body in respiratory tract [Unknown]
